FAERS Safety Report 6838587-1 (Version None)
Quarter: 2010Q3

REPORT INFORMATION
  Report Type: 
  Country: None (occurrence: None)
  Receive Date: 20100713
  Receipt Date: 20070617
  Transmission Date: 20110219
  Serious: No
  Sender: FDA-Public Use
  Company Number: US-PFIZER INC-2007049921

PATIENT
  Sex: Male
  Weight: 118.2 kg

DRUGS (5)
  1. CHANTIX [Suspect]
     Indication: SMOKING CESSATION THERAPY
     Dates: start: 20070608
  2. LISINOPRIL [Concomitant]
  3. PAROXETINE [Concomitant]
  4. GLIPIZIDE [Concomitant]
  5. FENOFIBRATE [Concomitant]

REACTIONS (1)
  - BACK PAIN [None]
